FAERS Safety Report 8978423 (Version 1)
Quarter: 2012Q4

REPORT INFORMATION
  Report Type: Spontaneous
  Country: US (occurrence: None)
  Receive Date: 20121218
  Receipt Date: 20121218
  Transmission Date: 20130627
  Serious: Yes (Other)
  Sender: FDA-Public Use
  Company Number: None

PATIENT
  Age: 44 Year
  Sex: Male
  Weight: 90 kg

DRUGS (1)
  1. DAPTOMYCIN [Suspect]
     Indication: ABDOMINAL ABSCESS
     Dosage: 540 mg Q24H IV (042)
     Route: 042
     Dates: start: 20121026, end: 20121116

REACTIONS (3)
  - Dyspnoea [None]
  - Cough [None]
  - Hypoxia [None]
